FAERS Safety Report 4686102-3 (Version None)
Quarter: 2005Q2

REPORT INFORMATION
  Report Type: 
  Country: None (occurrence: None)
  Receive Date: 20050606
  Receipt Date: 20050524
  Transmission Date: 20051028
  Serious: Yes (Other)
  Sender: FDA-Public Use
  Company Number: HQWYE987126MAY05

PATIENT
  Sex: Male

DRUGS (5)
  1. RAPAMUNE [Suspect]
     Indication: PROPHYLAXIS AGAINST TRANSPLANT REJECTION
     Dosage: LOADING DOSE OF 6 MG WITHIN 24 HOURS OF TRANSPLANTATION
     Dates: start: 20020101, end: 20020101
  2. CYCLOSPORINE [Concomitant]
  3. CYCLOSPORINE [Concomitant]
  4. METHYLPREDNISOLONE [Concomitant]
  5. PREDNISONE [Concomitant]

REACTIONS (2)
  - BLOOD CREATININE INCREASED [None]
  - COMPLICATIONS OF TRANSPLANTED KIDNEY [None]
